FAERS Safety Report 5661649-1 (Version None)
Quarter: 2008Q1

REPORT INFORMATION
  Report Type: 
  Country: None (occurrence: None)
  Receive Date: 20080312
  Receipt Date: 20080228
  Transmission Date: 20080703
  Serious: Yes (Death)
  Sender: FDA-Public Use
  Company Number: ES-AMGEN-US267910

PATIENT
  Age: 53 Year
  Sex: Male

DRUGS (1)
  1. ENBREL [Suspect]
     Indication: RHEUMATOID ARTHRITIS
     Dosage: CHOSEN BY THE TREATING PHYSICIAN
     Route: 065

REACTIONS (1)
  - PANCREATIC CARCINOMA METASTATIC [None]
